FAERS Safety Report 20405156 (Version 1)
Quarter: 2022Q1

REPORT INFORMATION
  Report Type: Spontaneous
  Country: US (occurrence: None)
  Receive Date: 20220130
  Receipt Date: 20220130
  Transmission Date: 20220424
  Serious: Yes (Life-Threatening, Other)
  Sender: FDA-Public Use
  Company Number: None

PATIENT
  Age: 59 Year
  Sex: Female
  Weight: 92.99 kg

DRUGS (3)
  1. HOMEOPATHICS [Suspect]
     Active Substance: HOMEOPATHICS
     Dosage: OTHER QUANTITY : 1 PUMP;?FREQUENCY : TWICE A DAY;?
     Route: 061
     Dates: start: 20181111, end: 20181130
  2. VIIBRYD [Concomitant]
     Active Substance: VILAZODONE HYDROCHLORIDE
  3. PROBIOTICS NOS [Concomitant]
     Active Substance: PROBIOTICS NOS

REACTIONS (4)
  - Drug-induced liver injury [None]
  - Autoimmune hepatitis [None]
  - Hepatitis viral [None]
  - Adverse drug reaction [None]

NARRATIVE: CASE EVENT DATE: 20181201
